FAERS Safety Report 10956987 (Version 2)
Quarter: 2016Q1

REPORT INFORMATION
  Report Type: Spontaneous
  Country: US (occurrence: US)
  Receive Date: 20150326
  Receipt Date: 20160225
  Transmission Date: 20160525
  Serious: Yes (Other)
  Sender: FDA-Public Use
  Company Number: US-FRI-1000075227

PATIENT
  Sex: Female

DRUGS (1)
  1. VIIBRYD [Suspect]
     Active Substance: VILAZODONE HYDROCHLORIDE

REACTIONS (7)
  - Hepatic neoplasm [Unknown]
  - Abdominal pain upper [Unknown]
  - Hepatic enzyme abnormal [Unknown]
  - Dyspnoea [Unknown]
  - Flatulence [Unknown]
  - Anxiety [Unknown]
  - Confusional state [Unknown]
